FAERS Safety Report 9850732 (Version 4)
Quarter: 2014Q2

REPORT INFORMATION
  Report Type: Spontaneous
  Country: JP (occurrence: JP)
  Receive Date: 20140128
  Receipt Date: 20140506
  Transmission Date: 20141212
  Serious: Yes (Hospitalization, Other)
  Sender: FDA-Public Use
  Company Number: JP-PFIZER INC-2014023009

PATIENT
  Age: 73 Year
  Sex: Female
  Weight: 49 kg

DRUGS (11)
  1. CAMPTO [Suspect]
     Indication: COLON CANCER
     Dosage: 252 MG/BODY (180 MG/M2), 1X/DAY
     Route: 041
     Dates: start: 20140109
  2. LEVOLEUCOVORIN CALCIUM [Suspect]
     Indication: COLON CANCER
     Dosage: 281 MG, (200MG/M2) 1X/DAY
     Route: 041
     Dates: start: 20140109
  3. 5-FU [Suspect]
     Indication: COLON CANCER
     Dosage: 562 MG/BODY (400 MG/M2), 1X/DAY
     Route: 040
     Dates: start: 20140109
  4. 5-FU [Suspect]
     Dosage: 3372 MG/BODY/D1-2 (2400 MG/M2/D1-2), ALTERNATE DAY
     Route: 041
     Dates: start: 20140109
  5. AVE0005 [Suspect]
     Indication: COLON CANCER
     Dosage: 194 MG/BODY, (4MG/KG)1X/DAY
     Route: 041
     Dates: start: 20140109
  6. SOLDEM 3A [Concomitant]
     Dosage: UNK
     Dates: start: 2012
  7. HALFDIGOXIN [Concomitant]
     Dosage: UNK
     Dates: start: 20130227
  8. OLMETEC [Concomitant]
     Dosage: UNK
     Dates: start: 20130415
  9. SOLCORT [Concomitant]
     Dosage: UNK
     Dates: start: 20140109, end: 20140109
  10. ALOXI [Concomitant]
     Dosage: UNK
     Dates: start: 20140109, end: 20140109
  11. ATROPINE SULFATE HYDRATE [Concomitant]
     Dosage: UNK
     Dates: start: 20140109, end: 20140109

REACTIONS (7)
  - Hepatic encephalopathy [Recovered/Resolved]
  - Hyperammonaemia [Recovered/Resolved]
  - Blood urea increased [Not Recovered/Not Resolved]
  - Lumbar vertebral fracture [Recovered/Resolved]
  - Nausea [Unknown]
  - Vomiting [Unknown]
  - Diarrhoea [Unknown]
